FAERS Safety Report 17857445 (Version 1)
Quarter: 2020Q2

REPORT INFORMATION
  Report Type: Spontaneous
  Country: US (occurrence: US)
  Receive Date: 20200603
  Receipt Date: 20200603
  Transmission Date: 20200714
  Serious: No
  Sender: FDA-Public Use
  Company Number: US-009507513-2006USA000809

PATIENT
  Age: 25 Year
  Sex: Female
  Weight: 86.18 kg

DRUGS (2)
  1. NEXPLANON [Suspect]
     Active Substance: ETONOGESTREL
     Indication: CONTRACEPTION
     Dosage: 1 ROD UPTO 3 YEARS, LEFT ARM IMPLANT
     Route: 059
     Dates: start: 20200502
  2. IRON (UNSPECIFIED) (+) MINERALS (UNSPECIFIED) (+) VITAMINS (UNSPECIFIE [Concomitant]
     Active Substance: IRON\MINERALS\VITAMINS
     Dosage: UNK

REACTIONS (1)
  - Implant site pain [Not Recovered/Not Resolved]

NARRATIVE: CASE EVENT DATE: 20200502
